FAERS Safety Report 10428317 (Version 2)
Quarter: 2014Q3

REPORT INFORMATION
  Report Type: Spontaneous
  Country: US (occurrence: None)
  Receive Date: 20140829
  Receipt Date: 20140929
  Transmission Date: 20150326
  Serious: Yes (Death, Hospitalization)
  Sender: FDA-Public Use
  Company Number: 2014US003623

PATIENT
  Age: 80 Year
  Sex: Male

DRUGS (1)
  1. ICLUSIG [Suspect]
     Active Substance: PONATINIB
     Indication: LEUKAEMIA
     Route: 048
     Dates: start: 20140807

REACTIONS (5)
  - Fatigue [None]
  - Asthenia [None]
  - Headache [None]
  - Cardiac disorder [None]
  - Clostridium difficile infection [None]
